FAERS Safety Report 9541031 (Version 1)
Quarter: 2013Q3

REPORT INFORMATION
  Report Type: Spontaneous
  Country: GB (occurrence: GB)
  Receive Date: 20130922
  Receipt Date: 20130922
  Transmission Date: 20140515
  Serious: Yes (Hospitalization)
  Sender: FDA-Public Use
  Company Number: GB-MYLANLABS-2013S1020522

PATIENT
  Age: 68 Year
  Sex: Male

DRUGS (10)
  1. INDAPAMIDE [Suspect]
     Indication: HYPERTENSION
     Route: 065
  2. OMEPRAZOLE [Interacting]
     Route: 065
  3. SALBUTAMOL [Concomitant]
     Dosage: INHALER
     Route: 055
  4. SERETIDE [Concomitant]
     Dosage: INHALER
     Route: 055
  5. ROSUVASTATIN [Concomitant]
     Route: 065
  6. AMLODIPINE [Concomitant]
     Route: 065
  7. LISINOPRIL [Concomitant]
     Route: 065
  8. METFORMIN [Concomitant]
     Route: 065
  9. GLICLAZIDE [Concomitant]
     Route: 065
  10. PIOGLITAZONE [Concomitant]
     Route: 065

REACTIONS (3)
  - Hypomagnesaemia [Recovered/Resolved]
  - Hypocalcaemia [Recovered/Resolved]
  - Potentiating drug interaction [Recovered/Resolved]
